FAERS Safety Report 4594678-X (Version None)
Quarter: 2005Q1

REPORT INFORMATION
  Report Type: 
  Country: None (occurrence: None)
  Receive Date: 20050301
  Receipt Date: 20041210
  Transmission Date: 20050727
  Serious: Yes (Other)
  Sender: FDA-Public Use
  Company Number: US-BRISTOL-MYERS SQUIBB COMPANY-12793949

PATIENT
  Age: 61 Year
  Sex: Male
  Weight: 100 kg

DRUGS (5)
  1. ERBITUX [Suspect]
     Indication: COLON CANCER
     Dosage: LOAD DOSE 800 MG ON 23-NOV-04, DOSE REDUCED BY 50% DUE TO EVENT.
     Route: 042
     Dates: start: 20041129, end: 20041129
  2. ERBITUX [Suspect]
     Indication: METASTASES TO LUNG
     Dosage: LOAD DOSE 800 MG ON 23-NOV-04, DOSE REDUCED BY 50% DUE TO EVENT.
     Route: 042
     Dates: start: 20041129, end: 20041129
  3. BENADRYL [Concomitant]
     Indication: PREMEDICATION
     Route: 042
     Dates: start: 20041129, end: 20041129
  4. CAMPTOSAR [Concomitant]
  5. VIBRAMYCIN [Concomitant]

REACTIONS (1)
  - RASH PUSTULAR [None]
